FAERS Safety Report 14028167 (Version 1)
Quarter: 2017Q3

REPORT INFORMATION
  Report Type: Spontaneous
  Country: US (occurrence: US)
  Receive Date: 20170930
  Receipt Date: 20170930
  Transmission Date: 20171128
  Serious: No
  Sender: FDA-Public Use
  Company Number: None

PATIENT
  Sex: Female
  Weight: 110.25 kg

DRUGS (7)
  1. METHYLPHENID ER 20 MG CAP [Suspect]
     Active Substance: METHYLPHENIDATE HYDROCHLORIDE
     Indication: ATTENTION DEFICIT/HYPERACTIVITY DISORDER
     Dosage: ?          QUANTITY:30 CAPSULE(S);?
     Route: 048
     Dates: start: 20170902, end: 20170930
  2. VIBERZI [Concomitant]
     Active Substance: ELUXADOLINE
  3. CALTRATE [Concomitant]
     Active Substance: CALCIUM CARBONATE
  4. LOVASTATIN. [Concomitant]
     Active Substance: LOVASTATIN
  5. COLON HEALTH [Concomitant]
  6. LISINOPRIL HTZ [Concomitant]
     Active Substance: HYDROCHLOROTHIAZIDE\LISINOPRIL
  7. VITAMIN [Concomitant]
     Active Substance: VITAMINS

REACTIONS (1)
  - Palpitations [None]

NARRATIVE: CASE EVENT DATE: 20170902
